FAERS Safety Report 8497976-2 (Version None)
Quarter: 2012Q3

REPORT INFORMATION
  Report Type: 
  Country: None (occurrence: None)
  Receive Date: 20120709
  Receipt Date: 20120618
  Transmission Date: 20120928
  Serious: No
  Sender: FDA-Public Use
  Company Number: US-AMGEN-USASP2012037712

PATIENT
  Age: 15 Year
  Sex: Female

DRUGS (1)
  1. ENBREL [Suspect]
     Indication: ANKYLOSING SPONDYLITIS
     Dosage: 50 MG, QWK
     Dates: start: 20120518

REACTIONS (6)
  - SINUS CONGESTION [None]
  - DRUG INEFFECTIVE [None]
  - CHILLS [None]
  - HEADACHE [None]
  - PYREXIA [None]
  - PAIN [None]
